FAERS Safety Report 16731452 (Version 1)
Quarter: 2019Q3

REPORT INFORMATION
  Report Type: Spontaneous
  Country: SE (occurrence: SE)
  Receive Date: 20190822
  Receipt Date: 20190822
  Transmission Date: 20191005
  Serious: Yes (Other)
  Sender: FDA-Public Use
  Company Number: SE-TEVA-2019-SE-1094940

PATIENT
  Age: 52 Year
  Sex: Male

DRUGS (1)
  1. METHOTREXATE. [Suspect]
     Active Substance: METHOTREXATE
     Indication: POLYARTHRITIS
     Dosage: ^TOOK THREE TABLETS IN TWO WEEKS ^
     Dates: start: 201906

REACTIONS (3)
  - Arthralgia [Unknown]
  - Rash pruritic [Unknown]
  - Joint swelling [Unknown]

NARRATIVE: CASE EVENT DATE: 201906
